FAERS Safety Report 8591153-2 (Version None)
Quarter: 2012Q3

REPORT INFORMATION
  Report Type: 
  Country: None (occurrence: None)
  Receive Date: 20120813
  Receipt Date: 20120806
  Transmission Date: 20120928
  Serious: Yes (Death, Hospitalization, Other)
  Sender: FDA-Public Use
  Company Number: AU-ROCHE-1060544

PATIENT
  Sex: Male

DRUGS (5)
  1. ACETAMINOPHEN AND CODEINE PHOSPHATE [Concomitant]
     Indication: PAIN
     Route: 048
     Dates: start: 20120210, end: 20120229
  2. ZELBORAF [Suspect]
     Indication: PRODUCT USED FOR UNKNOWN INDICATION
     Route: 065
     Dates: start: 20120301, end: 20120414
  3. COLOXYL + SENNA [Concomitant]
     Indication: CONSTIPATION
     Route: 048
     Dates: start: 20120203, end: 20120224
  4. MOVIPREP [Concomitant]
     Indication: CONSTIPATION
     Route: 048
     Dates: start: 20120203, end: 20120224
  5. MULTIVITAMINS WITH IRON [Concomitant]
     Indication: VITAMIN SUPPLEMENTATION
     Route: 048
     Dates: start: 20120308, end: 20120329

REACTIONS (6)
  - TRANSIENT ACANTHOLYTIC DERMATOSIS [None]
  - DISEASE PROGRESSION [None]
  - DEATH [None]
  - PANCYTOPENIA [None]
  - MALAISE [None]
  - FEBRILE NEUTROPENIA [None]
